FAERS Safety Report 9394344 (Version 2)
Quarter: 2013Q3

REPORT INFORMATION
  Report Type: Spontaneous
  Country: JP (occurrence: JP)
  Receive Date: 20130711
  Receipt Date: 20130910
  Transmission Date: 20140515
  Serious: Yes (Hospitalization)
  Sender: FDA-Public Use
  Company Number: JP-BRISTOL-MYERS SQUIBB COMPANY-19095215

PATIENT
  Age: 64 Year
  Sex: Male

DRUGS (7)
  1. ERBITUX SOLN FOR INF 5MG/ML [Suspect]
     Indication: COLON CANCER
     Route: 041
     Dates: start: 20110628, end: 20111109
  2. CALCIUM LEVOFOLINATE [Suspect]
     Indication: COLON CANCER
     Route: 041
     Dates: start: 20101117, end: 20111109
  3. OXALIPLATIN [Suspect]
     Indication: COLON CANCER
     Route: 041
     Dates: start: 20101117, end: 20111109
  4. 5-FLUOROURACIL [Suspect]
     Indication: COLON CANCER
     Dosage: 17NOV10-09NOV10:4000MG/DAY-IVDRIP?17NOV10-09NOV10:650MG/DAY-IVBOLUS
     Route: 041
     Dates: start: 20101117, end: 20111109
  5. AVASTIN [Suspect]
     Indication: COLON CANCER
     Route: 041
     Dates: start: 20110112, end: 20110525
  6. TOPOTECIN [Concomitant]
     Indication: COLON CANCER
     Route: 041
     Dates: start: 20110628, end: 20110810
  7. BARACLUDE TABS [Concomitant]
     Route: 048
     Dates: start: 20080701

REACTIONS (1)
  - Ileus [Recovering/Resolving]
